FAERS Safety Report 10044559 (Version 1)
Quarter: 2014Q1

REPORT INFORMATION
  Report Type: Spontaneous
  Country: NO (occurrence: NO)
  Receive Date: 20140328
  Receipt Date: 20140328
  Transmission Date: 20141002
  Serious: Yes (Hospitalization, Other)
  Sender: FDA-Public Use
  Company Number: NO-PFIZER INC-2014085643

PATIENT
  Age: 41 Year
  Sex: Male

DRUGS (3)
  1. TAZOCIN [Suspect]
     Indication: PNEUMONIA
     Dosage: 1 DF (2 G PIPERACILLIN AND 0,25 G TAZOBACTAM), 3X/DAY
     Route: 042
     Dates: start: 20140223, end: 20140224
  2. AMOXICILLIN [Suspect]
     Indication: PNEUMONIA
     Dosage: 500 MG, 3X/DAY
     Dates: start: 20140306, end: 20140313
  3. MERONEM [Suspect]
     Indication: PNEUMONIA
     Dosage: 1 G, 3X/DAY
     Route: 042
     Dates: start: 20140223, end: 20140306

REACTIONS (4)
  - Bone marrow failure [Recovered/Resolved with Sequelae]
  - Haemoglobin decreased [Recovered/Resolved]
  - White blood cell count decreased [Recovered/Resolved with Sequelae]
  - Platelet count decreased [Recovered/Resolved with Sequelae]
